FAERS Safety Report 6469769-9 (Version None)
Quarter: 2009Q4

REPORT INFORMATION
  Report Type: 
  Country: None (occurrence: None)
  Receive Date: 20091203
  Receipt Date: 20091125
  Transmission Date: 20100525
  Serious: Yes (Disabling, Other)
  Sender: FDA-Public Use
  Company Number: BR-PFIZER INC-2009302575

PATIENT
  Age: 23 Year
  Sex: Female
  Weight: 54 kg

DRUGS (6)
  1. DEPO-PROVERA [Suspect]
     Indication: CONTRACEPTION
     Dosage: 150 MG, EVERY 3 MONTHS
     Route: 030
     Dates: start: 20090803
  2. DEPO-PROVERA [Suspect]
     Dosage: 150 MG, EVERY 3 MONTHS
     Route: 030
     Dates: start: 20091103
  3. FELDENE [Suspect]
     Indication: OFF LABEL USE
     Dosage: 20 MG, 1X/DAY
     Route: 048
     Dates: start: 20091117, end: 20091118
  4. FELDENE [Suspect]
     Indication: VAGINAL HAEMORRHAGE
  5. TETRALYSAL [Concomitant]
     Indication: ACNE
     Dosage: 300 MG, 1X/DAY
     Route: 048
     Dates: start: 20091001
  6. CEFALIV [Concomitant]
     Indication: MIGRAINE
     Dosage: UNK
     Route: 048

REACTIONS (7)
  - DRY SKIN [None]
  - METRORRHAGIA [None]
  - PETECHIAE [None]
  - PRURITUS GENERALISED [None]
  - RASH PAPULAR [None]
  - SWELLING [None]
  - SWELLING FACE [None]
